FAERS Safety Report 19816064 (Version 1)
Quarter: 2021Q3

REPORT INFORMATION
  Report Type: Spontaneous
  Country: US (occurrence: US)
  Receive Date: 20210910
  Receipt Date: 20210910
  Transmission Date: 20211014
  Serious: No
  Sender: FDA-Public Use
  Company Number: US-NABRIVA THERAPEUTICS IRELAND DAC-US-2021NAB000010

PATIENT

DRUGS (1)
  1. XENLETA [Suspect]
     Active Substance: LEFAMULIN ACETATE
     Indication: PNEUMONIA
     Dosage: 600 MG BID
     Route: 048
     Dates: start: 20210622, end: 20210623

REACTIONS (3)
  - Abdominal pain upper [Unknown]
  - Diarrhoea [Unknown]
  - Insomnia [Unknown]

NARRATIVE: CASE EVENT DATE: 202106
